FAERS Safety Report 20460167 (Version 2)
Quarter: 2022Q3

REPORT INFORMATION
  Report Type: Spontaneous
  Country: US (occurrence: US)
  Receive Date: 20220211
  Receipt Date: 20220914
  Transmission Date: 20221026
  Serious: No
  Sender: FDA-Public Use
  Company Number: US-GILEAD-2022-0569358

PATIENT
  Sex: Female
  Weight: 104.32 kg

DRUGS (14)
  1. TRUVADA [Suspect]
     Active Substance: EMTRICITABINE\TENOFOVIR DISOPROXIL FUMARATE
     Indication: HIV infection
     Dosage: UNK
     Route: 048
     Dates: start: 2005, end: 2016
  2. BIKTARVY [Concomitant]
     Active Substance: BICTEGRAVIR SODIUM\EMTRICITABINE\TENOFOVIR ALAFENAMIDE FUMARATE
  3. ISENTRESS [Concomitant]
     Active Substance: RALTEGRAVIR POTASSIUM
  4. TIVICAY [Concomitant]
     Active Substance: DOLUTEGRAVIR SODIUM
  5. TRAMADOL [Concomitant]
     Active Substance: TRAMADOL
  6. FENTANYL [Concomitant]
     Active Substance: FENTANYL
  7. MAVYRET [Concomitant]
     Active Substance: GLECAPREVIR\PIBRENTASVIR
  8. ZOLOFT [Concomitant]
     Active Substance: SERTRALINE HYDROCHLORIDE
  9. ABILIFY [Concomitant]
     Active Substance: ARIPIPRAZOLE
  10. ALPRAZOLAM [Concomitant]
     Active Substance: ALPRAZOLAM
  11. METOPROLOL [Concomitant]
     Active Substance: METOPROLOL
  12. NORVASC [Concomitant]
     Active Substance: AMLODIPINE BESYLATE
  13. LOSARTAN [Concomitant]
     Active Substance: LOSARTAN
  14. MELOXICAM [Concomitant]
     Active Substance: MELOXICAM

REACTIONS (8)
  - Bone demineralisation [Not Recovered/Not Resolved]
  - Pain [Not Recovered/Not Resolved]
  - Emotional distress [Not Recovered/Not Resolved]
  - Anxiety [Not Recovered/Not Resolved]
  - Anhedonia [Not Recovered/Not Resolved]
  - Foot fracture [Recovered/Resolved]
  - Arthritis [Not Recovered/Not Resolved]
  - Degenerative bone disease [Not Recovered/Not Resolved]

NARRATIVE: CASE EVENT DATE: 20160101
